FAERS Safety Report 6504288-2 (Version None)
Quarter: 2009Q4

REPORT INFORMATION
  Report Type: 
  Country: None (occurrence: None)
  Receive Date: 20091217
  Receipt Date: 20091209
  Transmission Date: 20100525
  Serious: Yes (Hospitalization)
  Sender: FDA-Public Use
  Company Number: US-WATSON-2009-08835

PATIENT
  Sex: Female
  Weight: 63.039 kg

DRUGS (6)
  1. FERRLECIT [Suspect]
     Indication: IRON DEFICIENCY ANAEMIA
     Dosage: 125 MG WITH 100 ML NS, OVER 1/2 HR
     Route: 065
     Dates: start: 20091016, end: 20091016
  2. FERRLECIT [Suspect]
     Indication: MALABSORPTION
     Dosage: 125 MG WITH 100 ML NS, OVER 1/2 HR
     Route: 065
     Dates: start: 20091002, end: 20091002
  3. KLONOPIN [Concomitant]
     Indication: ANXIETY
     Dosage: 1 MG, BID
     Route: 048
     Dates: start: 20090701
  4. ZYPREXA [Concomitant]
     Indication: BIPOLAR DISORDER
     Dosage: 10 MG, QHS
     Route: 048
     Dates: start: 20090701
  5. TOPAMAX [Concomitant]
     Indication: DRUG USE FOR UNKNOWN INDICATION
     Dosage: 100 MG, QHS
     Route: 048
     Dates: start: 20090701
  6. VICODIN [Concomitant]
     Indication: DRUG USE FOR UNKNOWN INDICATION
     Dosage: 1 TABLET, TID
     Route: 048

REACTIONS (19)
  - ATOPY [None]
  - CSF GLUCOSE INCREASED [None]
  - CSF PROTEIN INCREASED [None]
  - CSF WHITE BLOOD CELL COUNT POSITIVE [None]
  - DISCOMFORT [None]
  - EYE SWELLING [None]
  - FATIGUE [None]
  - HEADACHE [None]
  - HYPONATRAEMIA [None]
  - MENINGITIS [None]
  - MENINGITIS ENTEROVIRAL [None]
  - MOUTH ULCERATION [None]
  - NAUSEA [None]
  - OCULAR HYPERAEMIA [None]
  - PAIN [None]
  - PHOTOPHOBIA [None]
  - PYREXIA [None]
  - STOMATITIS [None]
  - VOMITING [None]
